FAERS Safety Report 9352152 (Version 2)
Quarter: 2013Q2

REPORT INFORMATION
  Report Type: Spontaneous
  Country: US (occurrence: US)
  Receive Date: 20130617
  Receipt Date: 20130628
  Transmission Date: 20140414
  Serious: No
  Sender: FDA-Public Use
  Company Number: US-BIOGENIDEC-2013BI052124

PATIENT
  Age: 48 Year
  Sex: Female

DRUGS (4)
  1. AVONEX [Suspect]
     Indication: MULTIPLE SCLEROSIS
     Route: 030
     Dates: start: 20130524, end: 20130530
  2. AVONEX [Suspect]
     Indication: MULTIPLE SCLEROSIS
     Route: 030
     Dates: start: 20130531
  3. AVONEX [Suspect]
     Indication: MULTIPLE SCLEROSIS
     Route: 030
     Dates: start: 20130607
  4. AVONEX [Suspect]
     Indication: MULTIPLE SCLEROSIS
     Route: 030
     Dates: end: 20130614

REACTIONS (27)
  - Aggression [Not Recovered/Not Resolved]
  - Cough [Not Recovered/Not Resolved]
  - Peripheral coldness [Not Recovered/Not Resolved]
  - Body temperature decreased [Not Recovered/Not Resolved]
  - Haematochezia [Recovered/Resolved]
  - Abdominal discomfort [Not Recovered/Not Resolved]
  - Feeling drunk [Unknown]
  - Irritability [Not Recovered/Not Resolved]
  - Euphoric mood [Unknown]
  - Sluggishness [Unknown]
  - Drug withdrawal syndrome [Not Recovered/Not Resolved]
  - Tremor [Not Recovered/Not Resolved]
  - Sensory disturbance [Unknown]
  - Feeling cold [Unknown]
  - Abdominal pain upper [Unknown]
  - Speech disorder [Unknown]
  - Abnormal behaviour [Unknown]
  - Muscle spasms [Not Recovered/Not Resolved]
  - Mood swings [Not Recovered/Not Resolved]
  - Feeling hot [Not Recovered/Not Resolved]
  - Vomiting [Recovered/Resolved]
  - Dizziness [Recovered/Resolved]
  - Asthenia [Not Recovered/Not Resolved]
  - Influenza like illness [Not Recovered/Not Resolved]
  - Headache [Not Recovered/Not Resolved]
  - Feeling abnormal [Not Recovered/Not Resolved]
  - Confusional state [Not Recovered/Not Resolved]
